FAERS Safety Report 6393221-2 (Version None)
Quarter: 2009Q4

REPORT INFORMATION
  Report Type: 
  Country: None (occurrence: None)
  Receive Date: 20091008
  Receipt Date: 20090930
  Transmission Date: 20100525
  Serious: Yes (Hospitalization)
  Sender: FDA-Public Use
  Company Number: IT-NOVOPROD-292316

PATIENT

DRUGS (2)
  1. NOVORAPID [Suspect]
     Indication: DRUG USE FOR UNKNOWN INDICATION
     Dosage: 12+14 IU, QD
     Dates: start: 20080904
  2. NOVOMIX 30 [Concomitant]
     Indication: DRUG USE FOR UNKNOWN INDICATION
     Dosage: 10 IU, QD
     Dates: start: 20080904

REACTIONS (4)
  - DIZZINESS [None]
  - HYPOGLYCAEMIA [None]
  - TREMOR [None]
  - VOMITING [None]
